FAERS Safety Report 7917887-8 (Version None)
Quarter: 2011Q4

REPORT INFORMATION
  Report Type: 
  Country: None (occurrence: None)
  Receive Date: 20111114
  Receipt Date: 20111026
  Transmission Date: 20120403
  Serious: Yes (Other)
  Sender: FDA-Public Use
  Company Number: 1000024988

PATIENT
  Age: 44 Year
  Sex: Female
  Weight: 68.03 kg

DRUGS (7)
  1. GEODON [Concomitant]
  2. DEPLIN (L-METHYLFOLATE) TABLETS) (L-METHYLFOLATE) [Concomitant]
  3. CYMBALTA (DULOXETINE HYDROCHLORIDE)(CAPSULES) (DULOXETINE HYDROCHLORID [Concomitant]
  4. VIIBRYD [Suspect]
     Indication: DEPRESSION
     Dosage: ORAL
     Route: 048
     Dates: start: 20110701, end: 20110918
  5. PRISTIQ [Suspect]
     Indication: DEPRESSION
     Dosage: 50 MG (50 MG, 1 IN 1 D), ORAL
     Route: 048
     Dates: start: 20110919, end: 20110921
  6. LAMOTRIGINE [Concomitant]
  7. TRIHEPXPHENIDYL (TRIHEPXPHENIDYL) (2 MILLIGRAM) (TRIHEPXPHENIDYL) [Concomitant]

REACTIONS (2)
  - SUICIDAL IDEATION [None]
  - DRUG INEFFECTIVE [None]
